FAERS Safety Report 12522824 (Version 3)
Quarter: 2017Q3

REPORT INFORMATION
  Report Type: Report from Study
  Country: None (occurrence: NL)
  Receive Date: 20160701
  Receipt Date: 20170906
  Transmission Date: 20171127
  Serious: Yes (Other)
  Sender: FDA-Public Use
  Company Number: NL-ABBVIE-16P-114-1575875-00

PATIENT
  Age: 69 Year

DRUGS (16)
  1. TAFLUPROST [Concomitant]
     Active Substance: TAFLUPROST
     Indication: PRODUCT USED FOR UNKNOWN INDICATION
     Route: 050
  2. PANTOPRAZOL [Concomitant]
     Active Substance: PANTOPRAZOLE SODIUM
     Indication: PRODUCT USED FOR UNKNOWN INDICATION
     Route: 048
  3. CLOZAPINE. [Concomitant]
     Active Substance: CLOZAPINE
     Indication: PRODUCT USED FOR UNKNOWN INDICATION
  4. TIMOLOL. [Concomitant]
     Active Substance: TIMOLOL
     Indication: PRODUCT USED FOR UNKNOWN INDICATION
     Dosage: 5MG/ML
     Route: 050
  5. MOVICOLON [Concomitant]
     Active Substance: POLYETHYLENE GLYCOL 3350\POTASSIUM CHLORIDE\SODIUM BICARBONATE\SODIUM CHLORIDE
     Indication: PRODUCT USED FOR UNKNOWN INDICATION
     Route: 048
  6. DUODOPA [Suspect]
     Active Substance: CARBIDOPA\LEVODOPA
     Indication: PARKINSON^S DISEASE
     Dosage: MD: 1, CD: 0.3, ED: 0.5
     Route: 050
     Dates: start: 20100518
  7. DUODOPA [Suspect]
     Active Substance: CARBIDOPA\LEVODOPA
     Dosage: MORNING 6.0, CONTINUOUS 2.3
     Route: 050
  8. TERRACORTRIL MED POLYMYXIN [Concomitant]
     Indication: PRODUCT USED FOR UNKNOWN INDICATION
     Route: 050
  9. DUODOPA [Suspect]
     Active Substance: CARBIDOPA\LEVODOPA
     Dosage: MD: 9, CD: 3.4, ED: 2.5
     Route: 050
  10. BRINZOLAMIDE [Concomitant]
     Active Substance: BRINZOLAMIDE
     Indication: PRODUCT USED FOR UNKNOWN INDICATION
     Route: 050
  11. LEVODOPA/BENSERAZIDE [Concomitant]
     Active Substance: BENSERAZIDE\LEVODOPA
     Indication: PRODUCT USED FOR UNKNOWN INDICATION
     Dosage: 100/25MG
  12. MUPIROCINE [Concomitant]
     Indication: PRODUCT USED FOR UNKNOWN INDICATION
     Dosage: 20MG/G
  13. LEVODOPA/BENSERAZIDE [Concomitant]
     Active Substance: BENSERAZIDE\LEVODOPA
     Indication: PRODUCT USED FOR UNKNOWN INDICATION
     Dosage: 100/25MG
  14. LEVODOPA/CARBIDOPA/ENTACAPONE [Concomitant]
     Active Substance: CARBIDOPA\ENTACAPONE\LEVODOPA
     Indication: PRODUCT USED FOR UNKNOWN INDICATION
     Dosage: 100/25/200MG
     Route: 048
     Dates: start: 20160301
  15. RIVASTIGMINE. [Concomitant]
     Active Substance: RIVASTIGMINE
     Indication: PRODUCT USED FOR UNKNOWN INDICATION
     Route: 048
  16. FLUDROCORTISON [Concomitant]
     Active Substance: FLUDROCORTISONE
     Indication: HYPOTENSION
     Dates: start: 20160301

REACTIONS (29)
  - Communication disorder [Recovered/Resolved]
  - Disorientation [Not Recovered/Not Resolved]
  - Underweight [Not Recovered/Not Resolved]
  - Hypophagia [Not Recovered/Not Resolved]
  - Dyskinesia [Recovered/Resolved]
  - Freezing phenomenon [Not Recovered/Not Resolved]
  - Visual impairment [Not Recovered/Not Resolved]
  - Loss of consciousness [Unknown]
  - Dizziness [Not Recovered/Not Resolved]
  - Micturition urgency [Not Recovered/Not Resolved]
  - Hyperkinesia [Not Recovered/Not Resolved]
  - Movement disorder [Not Recovered/Not Resolved]
  - Gait disturbance [Recovered/Resolved]
  - Psychotic disorder [Not Recovered/Not Resolved]
  - Syncope [Not Recovered/Not Resolved]
  - Suspiciousness [Not Recovered/Not Resolved]
  - Poor quality sleep [Not Recovered/Not Resolved]
  - Urinary incontinence [Not Recovered/Not Resolved]
  - Pallor [Not Recovered/Not Resolved]
  - Orthostatic hypotension [Not Recovered/Not Resolved]
  - Wound [Not Recovered/Not Resolved]
  - Hallucination [Recovered/Resolved]
  - Sleep disorder [Not Recovered/Not Resolved]
  - Restlessness [Not Recovered/Not Resolved]
  - Abnormal dreams [Not Recovered/Not Resolved]
  - Delusion [Not Recovered/Not Resolved]
  - Tension [Not Recovered/Not Resolved]
  - Anger [Not Recovered/Not Resolved]
  - Hallucination, visual [Unknown]

NARRATIVE: CASE EVENT DATE: 20160228
